FAERS Safety Report 7055898-8 (Version None)
Quarter: 2010Q4

REPORT INFORMATION
  Report Type: 
  Country: None (occurrence: None)
  Receive Date: 20101021
  Receipt Date: 20101015
  Transmission Date: 20110411
  Serious: Yes (Other)
  Sender: FDA-Public Use
  Company Number: CHPA2010US16260

PATIENT
  Age: 65 Year
  Sex: Male
  Weight: 104.76 kg

DRUGS (6)
  1. BENEFIBER W/ WHEAT DEXTRIN (NCH) [Suspect]
     Dosage: 2 TSP, QD
     Route: 048
  2. DRUG THERAPY NOS [Concomitant]
     Indication: HYPERTENSION
  3. DRUG THERAPY NOS [Concomitant]
     Indication: BLOOD CHOLESTEROL
  4. DRUG THERAPY NOS [Concomitant]
     Indication: ARTHRITIS
  5. DRUG THERAPY NOS [Concomitant]
     Indication: OSTEOPOROSIS
  6. DRUG THERAPY NOS [Concomitant]

REACTIONS (3)
  - DIVERTICULUM [None]
  - DYSPEPSIA [None]
  - GASTROINTESTINAL INFECTION [None]
